FAERS Safety Report 5512365-8 (Version None)
Quarter: 2007Q4

REPORT INFORMATION
  Report Type: 
  Country: None (occurrence: None)
  Receive Date: 20071107
  Receipt Date: 20071022
  Transmission Date: 20080405
  Serious: Yes (Death)
  Sender: FDA-Public Use
  Company Number: 2007BM000150

PATIENT
  Age: 20 Year
  Sex: Male

DRUGS (6)
  1. PREDNISONE [Suspect]
     Indication: ANGIOEDEMA
     Dosage: 25 MG QD PO
     Route: 048
  2. PREDNISONE [Suspect]
     Indication: BRONCHOSPASM
     Dosage: 25 MG QD PO
     Route: 048
  3. PREDNISONE [Suspect]
     Indication: EOSINOPHILIA
     Dosage: 25 MG QD PO
     Route: 048
  4. PREDNISONE [Suspect]
     Indication: URTICARIA
     Dosage: 25 MG QD PO
     Route: 048
  5. ORAPRED (PREDNISOLONE SODIUM PHOSPHATE) SOLUTION (EXCEPT SYRUP), 20.2 [Suspect]
  6. OMEPRAZOLE [Concomitant]

REACTIONS (11)
  - ABDOMINAL DISTENSION [None]
  - ABDOMINAL PAIN [None]
  - ASPIRATION PLEURAL CAVITY ABNORMAL [None]
  - DYSPNOEA [None]
  - GASTRIC LAVAGE ABNORMAL [None]
  - MULTI-ORGAN FAILURE [None]
  - PLEURAL EFFUSION [None]
  - PYREXIA [None]
  - SEPSIS [None]
  - STRONGYLOIDIASIS [None]
  - VOMITING [None]
